FAERS Safety Report 18680934 (Version 1)
Quarter: 2020Q4

REPORT INFORMATION
  Report Type: Spontaneous
  Country: IT (occurrence: IT)
  Receive Date: 20201230
  Receipt Date: 20201230
  Transmission Date: 20210114
  Serious: Yes (Other)
  Sender: FDA-Public Use
  Company Number: IT-AUROBINDO-AUR-APL-2020-063201

PATIENT
  Age: 59 Year
  Sex: Male

DRUGS (7)
  1. DOLUTEGRAVIR [Concomitant]
     Active Substance: DOLUTEGRAVIR
     Indication: HIV INFECTION
  2. CLOPIDOGREL [Suspect]
     Active Substance: CLOPIDOGREL BISULFATE
     Indication: ACUTE MYOCARDIAL INFARCTION
     Dosage: UNK
     Route: 065
     Dates: start: 201704
  3. DOLUTEGRAVIR [Concomitant]
     Active Substance: DOLUTEGRAVIR
     Indication: HEPATITIS C
     Dosage: UNK
     Route: 065
     Dates: start: 2016
  4. FACTOR VIIA [Concomitant]
     Active Substance: COAGULATION FACTOR VIIA HUMAN
     Indication: FACTOR VIII DEFICIENCY
     Dosage: 3000 INTERNATIONAL UNIT, EVERY OTHER DAY
     Route: 065
     Dates: start: 201709
  5. ACETYLSALICYLIC ACID [Suspect]
     Active Substance: ASPIRIN
     Indication: ACUTE MYOCARDIAL INFARCTION
     Dosage: UNK
     Route: 065
     Dates: start: 201704
  6. DARUNAVIR [Concomitant]
     Active Substance: DARUNAVIR
     Indication: HEPATITIS C
     Dosage: UNK
     Route: 065
     Dates: start: 2016
  7. DARUNAVIR [Concomitant]
     Active Substance: DARUNAVIR
     Indication: HIV INFECTION

REACTIONS (2)
  - Condition aggravated [Recovering/Resolving]
  - Haemarthrosis [Recovering/Resolving]
